FAERS Safety Report 20977311 (Version 1)
Quarter: 2022Q2

REPORT INFORMATION
  Report Type: Spontaneous
  Country: CO (occurrence: CO)
  Receive Date: 20220617
  Receipt Date: 20220617
  Transmission Date: 20220721
  Serious: Yes (Other)
  Sender: FDA-Public Use
  Company Number: CO-009507513-2206COL004285

PATIENT
  Age: 7 Year
  Sex: Male

DRUGS (1)
  1. PEMBROLIZUMAB [Suspect]
     Active Substance: PEMBROLIZUMAB
     Indication: Xeroderma pigmentosum

REACTIONS (2)
  - Squamous cell carcinoma of skin [Unknown]
  - Product use in unapproved indication [Unknown]
